FAERS Safety Report 6025026-6 (Version None)
Quarter: 2008Q4

REPORT INFORMATION
  Report Type: 
  Country: None (occurrence: None)
  Receive Date: 20081230
  Receipt Date: 20081230
  Transmission Date: 20090506
  Serious: No
  Sender: FDA-Public Use
  Company Number: None

PATIENT
  Age: 69 Year
  Sex: Female
  Weight: 74.3899 kg

DRUGS (2)
  1. METOPROLOL SUCCINATE EXTENDED RELEASE [Suspect]
     Indication: CARDIAC STRESS TEST ABNORMAL
     Dosage: 1 TABLET BY MOUTH 1 PER DAY PO
     Route: 048
     Dates: start: 20081112, end: 20081112
  2. PRAVASTATIN [Suspect]
     Indication: BLOOD CHOLESTEROL INCREASED
     Dosage: 1 TABLET BY MOUTH 1 PER DAY PO
     Route: 048
     Dates: start: 20080923, end: 20081022

REACTIONS (5)
  - CARDIAC DISORDER [None]
  - CHEST PAIN [None]
  - DYSPNOEA [None]
  - RASH [None]
  - SKIN LESION [None]
